FAERS Safety Report 8054358-5 (Version None)
Quarter: 2012Q1

REPORT INFORMATION
  Report Type: 
  Country: None (occurrence: None)
  Receive Date: 20120118
  Receipt Date: 20120113
  Transmission Date: 20120608
  Serious: Yes (Hospitalization, Other)
  Sender: FDA-Public Use
  Company Number: PHEH2011US00445

PATIENT
  Sex: Female

DRUGS (18)
  1. FENTANYL [Concomitant]
  2. XANAX [Concomitant]
  3. CLARITIN [Concomitant]
  4. VITAMIN D [Concomitant]
  5. FERROUS SULFATE TAB [Concomitant]
  6. ZOMETA [Suspect]
     Indication: MULTIPLE MYELOMA
     Dosage: 4 MG, QMO
     Route: 042
     Dates: start: 20040101
  7. VIOXX [Concomitant]
     Dosage: 25 MG, QD
  8. VICODIN [Concomitant]
  9. INDERAL [Concomitant]
     Dosage: 10 MG, TID
     Route: 048
  10. PREDNISONE [Concomitant]
  11. OSCAL [Concomitant]
  12. COMPAZINE [Concomitant]
     Dosage: 10 MG, Q6H PRN
  13. OXYCONTIN [Concomitant]
     Dosage: 10 MG, Q12H
  14. ZOMETA [Suspect]
     Indication: OSTEOPOROSIS
  15. PROTONIX [Concomitant]
     Dosage: 40 MG, QD
     Route: 048
  16. AMOXICILLIN [Concomitant]
  17. THALIDOMIDE [Concomitant]
  18. COLACE [Concomitant]
     Dosage: 100 MG, QD
     Route: 048

REACTIONS (68)
  - PHYSICAL DISABILITY [None]
  - CARDIOMEGALY [None]
  - ABDOMINAL PAIN [None]
  - PLEURAL EFFUSION [None]
  - SINUSITIS [None]
  - RHINITIS ALLERGIC [None]
  - NAUSEA [None]
  - ATELECTASIS [None]
  - CYST [None]
  - NEUROPATHY PERIPHERAL [None]
  - JOINT CONTRACTURE [None]
  - CARDIAC MURMUR [None]
  - DEFORMITY [None]
  - BACK PAIN [None]
  - MITRAL VALVE PROLAPSE [None]
  - POLLAKIURIA [None]
  - ABDOMINAL TENDERNESS [None]
  - VOMITING [None]
  - HYPOKALAEMIA [None]
  - RASH [None]
  - TOOTHACHE [None]
  - IRON DEFICIENCY ANAEMIA [None]
  - MIGRAINE [None]
  - PATHOLOGICAL FRACTURE [None]
  - PAIN IN EXTREMITY [None]
  - EXPOSED BONE IN JAW [None]
  - PANCREATITIS [None]
  - ENDOMETRIOSIS [None]
  - ARRHYTHMIA [None]
  - GASTROOESOPHAGEAL REFLUX DISEASE [None]
  - OSTEOLYSIS [None]
  - OSTEOMYELITIS [None]
  - BONE METABOLISM DISORDER [None]
  - HYPERPARATHYROIDISM [None]
  - RHEUMATIC FEVER [None]
  - INFECTION [None]
  - ARTHRALGIA [None]
  - GASTRITIS [None]
  - BONE PAIN [None]
  - INTERVERTEBRAL DISC DEGENERATION [None]
  - BURNING SENSATION [None]
  - CACHEXIA [None]
  - BREAST MASS [None]
  - TIBIA FRACTURE [None]
  - JOINT SWELLING [None]
  - DIVERTICULUM [None]
  - GINGIVAL DISORDER [None]
  - OSTEOPENIA [None]
  - HYPOPHOSPHATAEMIA [None]
  - INGROWING NAIL [None]
  - PAIN [None]
  - INJURY [None]
  - OEDEMA [None]
  - TOBACCO ABUSE [None]
  - EAR INFECTION [None]
  - DYSKINESIA [None]
  - GINGIVAL SWELLING [None]
  - HYPOALBUMINAEMIA [None]
  - DIZZINESS [None]
  - OSTEONECROSIS OF JAW [None]
  - ANXIETY [None]
  - OSTEOPOROSIS [None]
  - PARAESTHESIA [None]
  - SINUS DISORDER [None]
  - GASTRIC ULCER [None]
  - ACIDOSIS [None]
  - HYPOAESTHESIA [None]
  - GAIT DISTURBANCE [None]
